FAERS Safety Report 4608253-1 (Version None)
Quarter: 2005Q1

REPORT INFORMATION
  Report Type: 
  Country: None (occurrence: None)
  Receive Date: 20050311
  Receipt Date: 20050304
  Transmission Date: 20050727
  Serious: No
  Sender: FDA-Public Use
  Company Number: 2005AC00172

PATIENT
  Sex: Male

DRUGS (12)
  1. MERONEM [Suspect]
     Indication: ABDOMINAL SEPSIS
     Dosage: 1 G DAILY IV
     Route: 042
     Dates: start: 20040818, end: 20040821
  2. DEPAKENE [Suspect]
     Indication: EPILEPSY
     Dosage: 2000 MG DAILY
     Dates: start: 20040817, end: 20040820
  3. DEPAKENE [Suspect]
     Indication: EPILEPSY
     Dosage: 3500 MG DAILY
     Dates: start: 20040820
  4. KEPPRA [Concomitant]
  5. TEMESTA [Concomitant]
  6. GARDENAL [Concomitant]
  7. CORDARONE [Concomitant]
  8. VENTOLIN HFA [Concomitant]
  9. RIFADIN [Concomitant]
  10. INH [Concomitant]
  11. TEBRAZID [Concomitant]
  12. LEVOPHED [Concomitant]

REACTIONS (3)
  - ANTICONVULSANT DRUG LEVEL BELOW THERAPEUTIC [None]
  - DRUG INTERACTION [None]
  - EPILEPSY [None]
